FAERS Safety Report 4409527-X (Version None)
Quarter: 2004Q3

REPORT INFORMATION
  Report Type: 
  Country: None (occurrence: None)
  Receive Date: 20040723
  Receipt Date: 20040714
  Transmission Date: 20050211
  Serious: Yes (Hospitalization)
  Sender: FDA-Public Use
  Company Number: 2004-03146

PATIENT
  Age: 32 Year
  Sex: Female

DRUGS (3)
  1. AMOXAPINE [Suspect]
     Indication: DEPRESSION
  2. PERPHENAZINE [Suspect]
     Indication: ANXIETY
  3. CITALOPRAM [Suspect]
     Indication: DEPRESSION

REACTIONS (4)
  - ACUTE RESPIRATORY DISTRESS SYNDROME [None]
  - DRUG ERUPTION [None]
  - DRUG INTERACTION [None]
  - PHOTOSENSITIVITY REACTION [None]
